FAERS Safety Report 11241711 (Version 1)
Quarter: 2015Q3

REPORT INFORMATION
  Report Type: Spontaneous
  Country: DE (occurrence: DE)
  Receive Date: 20150706
  Receipt Date: 20150706
  Transmission Date: 20151125
  Serious: Yes (Death)
  Sender: FDA-Public Use
  Company Number: DE-EMD SERONO-8032148

PATIENT
  Age: 58 Year
  Sex: Female

DRUGS (2)
  1. INTERFERON BETA NOS [Suspect]
     Active Substance: INTERFERON BETA
     Indication: MULTIPLE SCLEROSIS
     Route: 042
     Dates: start: 2000
  2. INTERFERON BETA NOS [Suspect]
     Active Substance: INTERFERON BETA
     Route: 042
     Dates: start: 2013

REACTIONS (1)
  - Myocardial infarction [Fatal]

NARRATIVE: CASE EVENT DATE: 20150409
